FAERS Safety Report 4818766-5 (Version None)
Quarter: 2005Q4

REPORT INFORMATION
  Report Type: 
  Country: None (occurrence: None)
  Receive Date: 20051101
  Receipt Date: 20051017
  Transmission Date: 20060501
  Serious: Yes (Other)
  Sender: FDA-Public Use
  Company Number: 430046M05USA

PATIENT
  Sex: Male

DRUGS (1)
  1. NOVANTRONE [Suspect]
     Indication: OFF LABEL USE
     Dosage: 1 IN 1 MONTHS, NOT REPORTED

REACTIONS (1)
  - EJECTION FRACTION ABNORMAL [None]
